FAERS Safety Report 13342492 (Version 1)
Quarter: 2017Q1

REPORT INFORMATION
  Report Type: Spontaneous
  Country: PE (occurrence: PE)
  Receive Date: 20170316
  Receipt Date: 20170316
  Transmission Date: 20170428
  Serious: Yes (Hospitalization, Other)
  Sender: FDA-Public Use
  Company Number: PE-PFIZER INC-2017098516

PATIENT
  Age: 60 Year
  Sex: Female

DRUGS (2)
  1. LEUMONT [Concomitant]
     Dosage: 150 MG(1 TABLET AND A HALF), 1X/DAY
  2. PRISTIQ EXTENDED-RELEASE [Suspect]
     Active Substance: DESVENLAFAXINE SUCCINATE
     Indication: DEPRESSION
     Dosage: 50 MG, DAILY
     Dates: start: 2011

REACTIONS (2)
  - Decreased immune responsiveness [Recovered/Resolved]
  - Bronchial disorder [Recovered/Resolved]
